FAERS Safety Report 25540984 (Version 1)
Quarter: 2025Q3

REPORT INFORMATION
  Report Type: Spontaneous
  Country: US (occurrence: None)
  Receive Date: 20250710
  Receipt Date: 20250710
  Transmission Date: 20251021
  Serious: Yes (Life-Threatening)
  Sender: FDA-CTU
  Company Number: None

PATIENT
  Age: 27 Year
  Sex: Female
  Weight: 50.8 kg

DRUGS (3)
  1. LYUMJEV [Suspect]
     Active Substance: INSULIN LISPRO-AABC
  2. Tandem Mobi Insulin pump [Concomitant]
  3. VITAMIN D [Concomitant]
     Active Substance: VITAMIN D NOS

REACTIONS (5)
  - Hypoglycaemia [None]
  - Device information output issue [None]
  - Device infusion issue [None]
  - Device malfunction [None]
  - Device information output issue [None]

NARRATIVE: CASE EVENT DATE: 20250710
